FAERS Safety Report 4437259-0 (Version None)
Quarter: 2004Q3

REPORT INFORMATION
  Report Type: 
  Country: None (occurrence: None)
  Receive Date: 20040728
  Receipt Date: 20040519
  Transmission Date: 20050211
  Serious: No
  Sender: FDA-Public Use
  Company Number: WAES 0405USA01459

PATIENT
  Age: 49 Year
  Sex: Female

DRUGS (5)
  1. EMEND [Suspect]
     Indication: PROPHYLACTIC CHEMOTHERAPY
     Dosage: 125 MG/1X/PO; SEE IMAGE
     Route: 048
     Dates: start: 20040517, end: 20040517
  2. EMEND [Suspect]
     Indication: PROPHYLACTIC CHEMOTHERAPY
     Dosage: 125 MG/1X/PO; SEE IMAGE
     Route: 048
     Dates: start: 20040518, end: 20040519
  3. ADRIAMYCIN PFS [Concomitant]
  4. CYTOXAN [Concomitant]
  5. [THERAPY UNSPECIFIED] [Concomitant]

REACTIONS (1)
  - PALPITATIONS [None]
